FAERS Safety Report 21949315 (Version 1)
Quarter: 2023Q1

REPORT INFORMATION
  Report Type: Spontaneous
  Country: US (occurrence: US)
  Receive Date: 20230203
  Receipt Date: 20230203
  Transmission Date: 20230418
  Serious: Yes (Other)
  Sender: FDA-Public Use
  Company Number: US-SUN PHARMACEUTICAL INDUSTRIES LTD-2023R1-376410

PATIENT
  Age: 56 Year
  Sex: Female

DRUGS (3)
  1. DESMOPRESSIN [Suspect]
     Active Substance: DESMOPRESSIN
     Indication: Nephrogenic diabetes insipidus
     Dosage: 0.5 MICROGRAM
     Route: 065
  2. WATER FOR INJECTION [Suspect]
     Active Substance: WATER
     Indication: Nephrogenic diabetes insipidus
     Dosage: UNK
     Route: 042
  3. FOSCARNET [Concomitant]
     Active Substance: FOSCARNET
     Indication: Cytomegalovirus viraemia
     Dosage: UNK
     Route: 065

REACTIONS (1)
  - Therapy partial responder [Unknown]
